FAERS Safety Report 7051492-3 (Version None)
Quarter: 2010Q4

REPORT INFORMATION
  Report Type: 
  Country: None (occurrence: None)
  Receive Date: 20101019
  Receipt Date: 20101012
  Transmission Date: 20110411
  Serious: Yes (Other)
  Sender: FDA-Public Use
  Company Number: B0679464A

PATIENT
  Age: 65 Year
  Sex: Female

DRUGS (1)
  1. VALACYCLOVIR [Suspect]
     Indication: HERPES SIMPLEX
     Dosage: 1000MG PER DAY
     Route: 048
     Dates: end: 20101006

REACTIONS (1)
  - JAUNDICE [None]
